FAERS Safety Report 13627779 (Version 1)
Quarter: 2017Q2

REPORT INFORMATION
  Report Type: Report from Study
  Country: US (occurrence: US)
  Receive Date: 20170607
  Receipt Date: 20170607
  Transmission Date: 20170830
  Serious: No
  Sender: FDA-Public Use
  Company Number: GXBR2017US001654

PATIENT
  Sex: Male
  Weight: 19.3 kg

DRUGS (1)
  1. OMNITROPE [Suspect]
     Active Substance: SOMATROPIN
     Indication: SMALL FOR DATES BABY
     Dosage: 0.6 MG, QD
     Route: 058
     Dates: start: 201608

REACTIONS (1)
  - Dermatitis allergic [Recovered/Resolved]
